FAERS Safety Report 11793384 (Version 4)
Quarter: 2016Q1

REPORT INFORMATION
  Report Type: Spontaneous
  Country: JP (occurrence: JP)
  Receive Date: 20151202
  Receipt Date: 20160127
  Transmission Date: 20160525
  Serious: Yes (Hospitalization, Other)
  Sender: FDA-Public Use
  Company Number: JP-ASTELLAS-2015JP023799

PATIENT
  Age: 85 Year
  Sex: Male

DRUGS (2)
  1. FLIVAS [Concomitant]
     Active Substance: NAFTOPIDIL
     Indication: BENIGN PROSTATIC HYPERPLASIA
     Route: 048
     Dates: start: 20101203, end: 20151028
  2. BETANIS [Suspect]
     Active Substance: MIRABEGRON
     Indication: HYPERTONIC BLADDER
     Route: 048
     Dates: start: 20140920, end: 20151125

REACTIONS (2)
  - Urinary retention [Recovering/Resolving]
  - Pyelonephritis acute [Recovering/Resolving]

NARRATIVE: CASE EVENT DATE: 20151124
